FAERS Safety Report 5935145-8 (Version None)
Quarter: 2008Q4

REPORT INFORMATION
  Report Type: 
  Country: None (occurrence: None)
  Receive Date: 20081030
  Receipt Date: 20081020
  Transmission Date: 20090506
  Serious: Yes (Other)
  Sender: FDA-Public Use
  Company Number: BR-BAYER-200819662LA

PATIENT
  Age: 36 Year
  Sex: Female

DRUGS (10)
  1. BETAFERON [Suspect]
     Indication: MULTIPLE SCLEROSIS
     Route: 058
     Dates: start: 20081010
  2. SYNTHROID [Concomitant]
     Indication: HYPOTHYROIDISM
     Dosage: TOTAL DAILY DOSE: 175 ?G  UNIT DOSE: 175 ?G
     Route: 048
     Dates: start: 19900101
  3. ATENOLOL [Concomitant]
     Indication: HYPERTENSION
     Dosage: TOTAL DAILY DOSE: 50 MG  UNIT DOSE: 50 MG
     Route: 048
     Dates: start: 20080701
  4. MODURETIC 5-50 [Concomitant]
     Indication: HYPERTENSION
     Dosage: TOTAL DAILY DOSE: 50 MG  UNIT DOSE: 50 MG
     Route: 048
     Dates: start: 20080701
  5. CYMBALTA [Concomitant]
     Indication: DEPRESSION
     Dosage: TOTAL DAILY DOSE: 60 MG  UNIT DOSE: 60 MG
     Route: 048
     Dates: start: 20080801
  6. GABAPENTIN [Concomitant]
     Indication: MULTIPLE SCLEROSIS RELAPSE
     Dosage: TOTAL DAILY DOSE: 1800 MG  UNIT DOSE: 600 MG
     Route: 048
     Dates: start: 20080801
  7. BACLOFEN [Concomitant]
     Indication: MULTIPLE SCLEROSIS RELAPSE
     Route: 048
     Dates: start: 20081005
  8. HYDANTAL [Concomitant]
     Indication: MULTIPLE SCLEROSIS RELAPSE
     Route: 048
     Dates: start: 20081020
  9. TEGRETOL [Concomitant]
     Indication: MULTIPLE SCLEROSIS RELAPSE
     Route: 048
     Dates: start: 20081001, end: 20081019
  10. COMPLEX B [Concomitant]
     Indication: VITAMIN SUPPLEMENTATION
     Route: 048
     Dates: start: 20080701

REACTIONS (1)
  - SOMNOLENCE [None]
